FAERS Safety Report 16208378 (Version 2)
Quarter: 2022Q3

REPORT INFORMATION
  Report Type: Spontaneous
  Country: IT (occurrence: IT)
  Receive Date: 20190417
  Receipt Date: 20220623
  Transmission Date: 20221027
  Serious: Yes (Other)
  Sender: FDA-Public Use
  Company Number: PHHY2019IT027026

PATIENT
  Age: 63 Year
  Sex: Female
  Weight: 58 kg

DRUGS (12)
  1. SIGNIFOR [Suspect]
     Active Substance: PASIREOTIDE DIASPARTATE
     Indication: Nesidioblastosis
     Dosage: 0.6 MG, BID FOR 4 DAYS (PERIOD B)
     Route: 058
  2. SIGNIFOR [Suspect]
     Active Substance: PASIREOTIDE DIASPARTATE
     Indication: Hypoglycaemia
     Dosage: 0.6 MG, BID CONTINUED (PERIOD C)
     Route: 058
  3. SANDOSTATIN [Suspect]
     Active Substance: OCTREOTIDE ACETATE
     Indication: Nesidioblastosis
     Dosage: 100 UG, QD
     Route: 058
     Dates: start: 201604
  4. SANDOSTATIN [Suspect]
     Active Substance: OCTREOTIDE ACETATE
     Indication: Hypoglycaemia
  5. SANDOSTATIN [Suspect]
     Active Substance: OCTREOTIDE ACETATE
  6. HYDROCHLOROTHIAZIDE [Concomitant]
     Active Substance: HYDROCHLOROTHIAZIDE
     Indication: Nesidioblastosis
     Dosage: 12.5 MG, QD
     Route: 065
  7. HYDROCHLOROTHIAZIDE [Concomitant]
     Active Substance: HYDROCHLOROTHIAZIDE
     Indication: Hypoglycaemia
  8. DIAZOXIDE [Concomitant]
     Active Substance: DIAZOXIDE
     Indication: Nesidioblastosis
     Dosage: UP TO 225 MG, QD
     Route: 065
  9. DIAZOXIDE [Concomitant]
     Active Substance: DIAZOXIDE
     Indication: Hypoglycaemia
     Dosage: 225 MG, QD (CONTINUED FOR 4 DAYS (PERIOD A)
     Route: 065
  10. DIAZOXIDE [Concomitant]
     Active Substance: DIAZOXIDE
     Dosage: SCALED DOWN TO 150 MG, QD
     Route: 065
  11. DIAZOXIDE [Concomitant]
     Active Substance: DIAZOXIDE
     Dosage: SCALED DOWN TO 75 MG, QD
     Route: 065
  12. DIAZOXIDE [Concomitant]
     Active Substance: DIAZOXIDE
     Dosage: 225 MG, QD (SCALED UP TO ORIGINAL DOSE)
     Route: 065

REACTIONS (4)
  - Insulinoma [Unknown]
  - Hypoglycaemia [Unknown]
  - Product use in unapproved indication [Unknown]
  - Off label use [Unknown]
